FAERS Safety Report 4655817-5 (Version None)
Quarter: 2005Q2

REPORT INFORMATION
  Report Type: 
  Country: None (occurrence: None)
  Receive Date: 20050506
  Receipt Date: 20050506
  Transmission Date: 20051028
  Serious: Yes (Disabling)
  Sender: FDA-Public Use
  Company Number: None

PATIENT
  Sex: Female

DRUGS (1)
  1. ENBREL [Suspect]
     Indication: PSORIATIC ARTHROPATHY
     Dosage: 50 MG SC Q WK
     Route: 058
     Dates: start: 20041101, end: 20041201

REACTIONS (5)
  - COORDINATION ABNORMAL [None]
  - DEMYELINATION [None]
  - DYSARTHRIA [None]
  - MUSCLE SPASTICITY [None]
  - NERVOUS SYSTEM DISORDER [None]
